FAERS Safety Report 12770995 (Version 1)
Quarter: 2016Q3

REPORT INFORMATION
  Report Type: Report from Study
  Country: US (occurrence: US)
  Receive Date: 20160922
  Receipt Date: 20160922
  Transmission Date: 20161109
  Serious: No
  Sender: FDA-Public Use
  Company Number: US-GE HEALTHCARE MEDICAL DIAGNOSTICS-PET1-PR-1607S-0012

PATIENT
  Age: 80 Year
  Sex: Female

DRUGS (2)
  1. FLUTEMETAMOL [F18] INJECTION [Suspect]
     Active Substance: FLUTEMETAMOL F-18
     Indication: DEMENTIA ALZHEIMER^S TYPE
     Dosage: DOSE NOT REPORTED
     Route: 042
     Dates: start: 20160727, end: 20160727
  2. FLUTEMETAMOL [F18] INJECTION [Suspect]
     Active Substance: FLUTEMETAMOL F-18
     Indication: DIAGNOSTIC PROCEDURE

REACTIONS (2)
  - Dizziness [Unknown]
  - Loss of consciousness [Recovered/Resolved]

NARRATIVE: CASE EVENT DATE: 20160727
